FAERS Safety Report 6731619-0 (Version None)
Quarter: 2010Q2

REPORT INFORMATION
  Report Type: 
  Country: None (occurrence: None)
  Receive Date: 20100518
  Receipt Date: 20100518
  Transmission Date: 20101027
  Serious: Yes (Hospitalization)
  Sender: FDA-Public Use
  Company Number: None

PATIENT
  Age: 89 Year
  Sex: Male

DRUGS (4)
  1. ZYVOX [Suspect]
     Indication: LEUKOCYTOSIS
     Dosage: 600 MG Q12H IV BOLUS
     Route: 040
     Dates: start: 20100331, end: 20100402
  2. ZYVOX [Suspect]
     Indication: PNEUMONIA
     Dosage: 600 MG Q12H IV BOLUS
     Route: 040
     Dates: start: 20100331, end: 20100402
  3. ZYVOX [Suspect]
     Indication: RESPIRATORY FAILURE
     Dosage: 600 MG Q12H IV BOLUS
     Route: 040
     Dates: start: 20100331, end: 20100402
  4. ZYVOX [Suspect]
     Indication: SEPSIS
     Dosage: 600 MG Q12H IV BOLUS
     Route: 040
     Dates: start: 20100331, end: 20100402

REACTIONS (2)
  - RASH [None]
  - THROMBOCYTOPENIA [None]
